FAERS Safety Report 10041151 (Version 3)
Quarter: 2014Q2

REPORT INFORMATION
  Report Type: Spontaneous
  Country: CA (occurrence: CA)
  Receive Date: 20140327
  Receipt Date: 20140418
  Transmission Date: 20141212
  Serious: Yes (Hospitalization)
  Sender: FDA-Public Use
  Company Number: CA-SA-2014SA033879

PATIENT
  Age: 89 Year
  Sex: Male

DRUGS (2)
  1. ELIGARD [Suspect]
     Indication: PROSTATE CANCER
     Dosage: FREQUENCY- Q3 MONTHS
     Route: 058
     Dates: start: 20131219
  2. ELIGARD [Suspect]
     Indication: PROSTATE CANCER
     Dosage: FREQUENCY: Q 3 MONTHS
     Route: 058

REACTIONS (2)
  - Hospitalisation [Unknown]
  - Drug dose omission [Unknown]
